FAERS Safety Report 7213581-X (Version None)
Quarter: 2011Q1

REPORT INFORMATION
  Report Type: 
  Country: None (occurrence: None)
  Receive Date: 20110106
  Receipt Date: 20101223
  Transmission Date: 20110831
  Serious: Yes (Life-Threatening, Hospitalization)
  Sender: FDA-Public Use
  Company Number: FR-SANOFI-AVENTIS-200813097FR

PATIENT
  Age: 26 Year
  Sex: Female

DRUGS (12)
  1. SUPRADYN /ARG/ [Suspect]
     Route: 048
     Dates: start: 20080601
  2. VITAMIN TAB [Suspect]
     Route: 048
     Dates: start: 20080601
  3. DERINOX [Suspect]
     Indication: SINUSITIS
     Route: 045
     Dates: start: 20080621
  4. PARACETAMOL [Concomitant]
     Indication: HEADACHE
     Route: 048
  5. SOLUPRED [Suspect]
     Indication: SINUSITIS
     Route: 048
     Dates: start: 20080621, end: 20080624
  6. ADVIL [Suspect]
     Route: 048
     Dates: start: 20080601, end: 20080601
  7. KETEK [Suspect]
     Route: 048
     Dates: start: 20080601
  8. LYSANXIA [Concomitant]
     Indication: ANXIETY
     Dosage: DOSE UNIT: 10 MG
     Route: 048
     Dates: start: 20080420
  9. PNEUMOREL [Suspect]
     Indication: SINUSITIS
     Route: 048
     Dates: start: 20080621, end: 20080630
  10. EUPHYTOSE [Suspect]
     Route: 048
     Dates: start: 20080630
  11. NORDETTE-21 [Concomitant]
     Indication: ORAL CONTRACEPTION
     Dosage: DOSE UNIT: 1 U DOSE:1 UNIT(S)
     Route: 048
     Dates: start: 20030101
  12. LEXOMIL [Concomitant]
     Indication: ANXIETY
     Dosage: DOSE UNIT: 6 MG
     Route: 048
     Dates: start: 20050101

REACTIONS (2)
  - SKIN TEST NEGATIVE [None]
  - STEVENS-JOHNSON SYNDROME [None]
